FAERS Safety Report 16464948 (Version 2)
Quarter: 2019Q3

REPORT INFORMATION
  Report Type: Spontaneous
  Country: BR (occurrence: BR)
  Receive Date: 20190621
  Receipt Date: 20190719
  Transmission Date: 20191004
  Serious: Yes (Death)
  Sender: FDA-Public Use
  Company Number: BR-ALLERGAN-1925647US

PATIENT
  Sex: Female

DRUGS (1)
  1. ATROPINA 0.5% [Suspect]
     Active Substance: ATROPINE SULFATE
     Indication: SALIVARY HYPERSECRETION
     Dosage: 2 GTT, UNK
     Route: 060
     Dates: start: 2017, end: 201809

REACTIONS (2)
  - Dementia Alzheimer^s type [Fatal]
  - Off label use [Unknown]

NARRATIVE: CASE EVENT DATE: 201809
